FAERS Safety Report 25459171 (Version 1)
Quarter: 2025Q2

REPORT INFORMATION
  Report Type: Spontaneous
  Country: US (occurrence: None)
  Receive Date: 20250620
  Receipt Date: 20250620
  Transmission Date: 20250717
  Serious: Yes (Other)
  Sender: ACS DOBFAR
  Company Number: US-ACS-20250325

PATIENT
  Age: 76 Year
  Sex: Male
  Weight: 98.1 kg

DRUGS (13)
  1. CEFEPIME [Suspect]
     Active Substance: CEFEPIME HYDROCHLORIDE
     Indication: Infection
     Dosage: 2GRAMS IV PIGGY BACK EVERY 12 HOURS?NDC NUMBER OF CEFEPIME: UNKNOWN REASON FOR NO LOT NUMBER: OF ...
     Route: 040
     Dates: start: 20250605
  2. ELREXFIO [Suspect]
     Active Substance: ELRANATAMAB-BCMM
     Indication: Plasma cell myeloma refractory
     Route: 058
     Dates: start: 20250602
  3. DEXAMETHASONE [Suspect]
     Active Substance: DEXAMETHASONE
     Route: 040
     Dates: start: 20250602
  4. DEXAMETHASONE [Suspect]
     Active Substance: DEXAMETHASONE
     Route: 040
     Dates: start: 20250603
  5. ACYCLOVIR [Concomitant]
     Active Substance: ACYCLOVIR
     Indication: Infection prophylaxis
     Dosage: 400MG TABLET TWICE DAILY BY MOUTH
     Route: 048
  6. APIXABAN [Concomitant]
     Active Substance: APIXABAN
     Indication: Thrombosis prophylaxis
     Dosage: 5MG ONE TABLET BY MOUTH DAILUY
     Route: 048
  7. GABAPENTIN [Concomitant]
     Active Substance: GABAPENTIN
     Indication: Pain
     Dosage: 600MG CAPSULE IN THE MORNING AND AT NIGHT BY MOUTH, 300MG ONCE DAILY IN THE AFTERNOON WITH LUNCH
     Route: 048
  8. GABAPENTIN [Concomitant]
     Active Substance: GABAPENTIN
     Indication: Pain
     Dosage: 600MG CAPSULE IN THE MORNING AND AT NIGHT BY MOUTH, 300MG ONCE DAILY IN THE AFTERNOON WITH LUNCH
     Route: 048
  9. LEVOTHYROXINE [Concomitant]
     Active Substance: LEVOTHYROXINE
     Indication: Hypothyroidism
     Dosage: 100MCG TABLET ONCE DAILY
  10. LOSARTAN [Concomitant]
     Active Substance: LOSARTAN
     Indication: Blood pressure measurement
     Dosage: 50MG TABLET ONCE DAIY
  11. METOPROLOL SUCCINATE [Concomitant]
     Active Substance: METOPROLOL SUCCINATE
     Indication: Blood pressure measurement
     Dosage: 25MG TABLET ONE HALF TABLET, EQUAL TO 12.5MG DAILY
     Dates: end: 20250606
  12. OMEPRAZOLE [Concomitant]
     Active Substance: OMEPRAZOLE
     Dosage: OVER THE COUNTER SO NOT CLEAR ON THE INDICATION?40MG CAPSULE BY MOUTH ONCE DAILY
  13. BACTRIM [Concomitant]
     Active Substance: SULFAMETHOXAZOLE\TRIMETHOPRIM
     Indication: Infection prophylaxis
     Dosage: 800MG, DS TABLET, ONE TABLET ON MONDAY, WEDNESDAY, AND FRIDAY

REACTIONS (3)
  - Altered state of consciousness [Unknown]
  - Pyrexia [Recovered/Resolved]
  - Somnolence [Unknown]

NARRATIVE: CASE EVENT DATE: 20250604
